FAERS Safety Report 5967783-0 (Version None)
Quarter: 2008Q4

REPORT INFORMATION
  Report Type: 
  Country: None (occurrence: None)
  Receive Date: 20081126
  Receipt Date: 20081121
  Transmission Date: 20090506
  Serious: Yes (Life-Threatening, Other)
  Sender: FDA-Public Use
  Company Number: GB-WYE-G02623108

PATIENT
  Age: 56 Year
  Sex: Male
  Weight: 86.7 kg

DRUGS (17)
  1. TAZOCIN [Suspect]
     Indication: SEPSIS
     Dosage: 4.5G FREQUENCY UNKNOWN
     Route: 042
     Dates: start: 20081021, end: 20081021
  2. FOLIC ACID [Concomitant]
  3. FUROSEMIDE [Concomitant]
  4. LACTULOSE [Concomitant]
     Route: 048
  5. MEROPENEM [Concomitant]
     Route: 042
  6. NICORETTE DS [Concomitant]
     Route: 048
  7. OMEPRAZOLE [Concomitant]
     Route: 048
  8. PABRINEX [Concomitant]
     Dosage: UNKNOWN DOSE 3 TIMES DAILY
  9. RIFAXIMIN [Concomitant]
     Route: 048
  10. SANDO K [Concomitant]
     Route: 048
  11. SUCRALFATE [Concomitant]
  12. THIAMINE HCL [Concomitant]
     Route: 048
  13. URSODIOL [Concomitant]
     Route: 048
  14. VANCOMYCIN [Concomitant]
     Route: 042
  15. VITAMIN B [Concomitant]
     Dosage: 2 DOSES FREQUENCY UNKNOWN
     Route: 048
  16. ZINC [Concomitant]
     Route: 048
  17. AMLODIPINE [Concomitant]

REACTIONS (2)
  - OBSTRUCTIVE AIRWAYS DISORDER [None]
  - SWOLLEN TONGUE [None]
